FAERS Safety Report 17366420 (Version 1)
Quarter: 2020Q1

REPORT INFORMATION
  Report Type: Spontaneous
  Country: US (occurrence: US)
  Receive Date: 20200204
  Receipt Date: 20200204
  Transmission Date: 20200409
  Serious: No
  Sender: FDA-Public Use
  Company Number: US-SA-2020SA028748

PATIENT
  Age: 60 Year
  Sex: Female

DRUGS (12)
  1. OLOPATADINE. [Concomitant]
     Active Substance: OLOPATADINE
  2. BUTALBITAL [Concomitant]
     Active Substance: BUTALBITAL
  3. QVAR [Concomitant]
     Active Substance: BECLOMETHASONE DIPROPIONATE
  4. APAP [Concomitant]
     Active Substance: ACETAMINOPHEN
  5. AZELASTINE. [Concomitant]
     Active Substance: AZELASTINE HYDROCHLORIDE
  6. CARVEDILOL. [Concomitant]
     Active Substance: CARVEDILOL
  7. IRBESARTAN. [Concomitant]
     Active Substance: IRBESARTAN
  8. PANTOPRAZOLE [Concomitant]
     Active Substance: PANTOPRAZOLE
  9. CAFFEINE. [Concomitant]
     Active Substance: CAFFEINE
  10. CODEINE [Concomitant]
     Active Substance: CODEINE
  11. SYMBICORT [Concomitant]
     Active Substance: BUDESONIDE\FORMOTEROL FUMARATE DIHYDRATE
  12. DUPIXENT [Suspect]
     Active Substance: DUPILUMAB
     Indication: DERMATITIS ATOPIC
     Dosage: 300 MG, QOW
     Route: 058
     Dates: start: 20190211

REACTIONS (3)
  - Eye pruritus [Unknown]
  - Blepharospasm [Unknown]
  - Eye irritation [Unknown]

NARRATIVE: CASE EVENT DATE: 20200102
